FAERS Safety Report 7115653-7 (Version None)
Quarter: 2010Q4

REPORT INFORMATION
  Report Type: 
  Country: None (occurrence: None)
  Receive Date: 20101122
  Receipt Date: 20101112
  Transmission Date: 20110411
  Serious: Yes (Other)
  Sender: FDA-Public Use
  Company Number: US-JNJFOC-20100703941

PATIENT
  Sex: Male

DRUGS (2)
  1. LEVAQUIN [Suspect]
     Indication: LUNG INFECTION
     Route: 048
  2. SOLU-MEDROL [Suspect]
     Indication: PNEUMONIA

REACTIONS (3)
  - MUSCLE RUPTURE [None]
  - SYNOVITIS [None]
  - TENDON RUPTURE [None]
